FAERS Safety Report 16059089 (Version 3)
Quarter: 2022Q2

REPORT INFORMATION
  Report Type: Report from Study
  Country: GR (occurrence: GR)
  Receive Date: 20190311
  Receipt Date: 20220528
  Transmission Date: 20220721
  Serious: Yes (Hospitalization, Other)
  Sender: FDA-Public Use
  Company Number: PHHY2019GR039271

PATIENT
  Age: 40 Year
  Sex: Male
  Weight: 98 kg

DRUGS (3)
  1. COSENTYX [Suspect]
     Active Substance: SECUKINUMAB
     Indication: Psoriatic arthropathy
     Dosage: 300 MG, UNK
     Route: 065
     Dates: start: 20170813, end: 20170909
  2. COSENTYX [Suspect]
     Active Substance: SECUKINUMAB
     Dosage: 300 MG, UNK
     Route: 065
     Dates: start: 20170910, end: 20181016
  3. COSENTYX [Suspect]
     Active Substance: SECUKINUMAB
     Dosage: 300 MG, QMO
     Route: 058
     Dates: start: 20181115, end: 20190215

REACTIONS (2)
  - Anal abscess [Recovered/Resolved]
  - Anal fistula [Recovered/Resolved]

NARRATIVE: CASE EVENT DATE: 20181016
